FAERS Safety Report 18039571 (Version 1)
Quarter: 2020Q3

REPORT INFORMATION
  Report Type: Spontaneous
  Country: CN (occurrence: CN)
  Receive Date: 20200717
  Receipt Date: 20200717
  Transmission Date: 20201103
  Serious: Yes (Hospitalization)
  Sender: FDA-Public Use
  Company Number: NVSC2020CN196604

PATIENT
  Age: 55 Year
  Sex: Female
  Weight: 50 kg

DRUGS (1)
  1. TEGRETOL [Suspect]
     Active Substance: CARBAMAZEPINE
     Indication: TRIGEMINAL NEURALGIA
     Dosage: 0.2 G, BID
     Route: 048
     Dates: start: 20200529, end: 20200627

REACTIONS (4)
  - Dermatitis [Recovering/Resolving]
  - Liver injury [Recovering/Resolving]
  - Mouth ulceration [Recovering/Resolving]
  - Penile ulceration [Recovering/Resolving]

NARRATIVE: CASE EVENT DATE: 20200627
